FAERS Safety Report 5217520-2 (Version None)
Quarter: 2007Q1

REPORT INFORMATION
  Report Type: 
  Country: None (occurrence: None)
  Receive Date: 20070124
  Receipt Date: 20061229
  Transmission Date: 20070707
  Serious: Yes (Death, Life-Threatening, Hospitalization)
  Sender: FDA-Public Use
  Company Number: JP-NOVOPROD-259485

PATIENT
  Age: 83 Year
  Sex: Female
  Weight: 34 kg

DRUGS (7)
  1. NOVORAPID CHU [Suspect]
     Indication: INSULIN-REQUIRING TYPE II DIABETES MELLITUS
     Dosage: 18-32 IU, QD
     Route: 058
     Dates: start: 20031002
  2. NOVOLIN N [Suspect]
     Indication: INSULIN-REQUIRING TYPE II DIABETES MELLITUS
     Dosage: 4 IU, QD
     Route: 058
  3. RADEN [Concomitant]
     Dosage: 150 MG, UNK
     Route: 048
     Dates: start: 20000407, end: 20050927
  4. GLORIAMIN [Concomitant]
     Dosage: .5 G, UNK
     Route: 048
     Dates: start: 20000407, end: 20050927
  5. ATARAX [Concomitant]
     Dosage: 25 MG, QD
     Route: 048
     Dates: start: 20000407, end: 20050927
  6. PREDONINE                          /00016201/ [Concomitant]
     Dosage: 2.5 MG, QD
     Route: 048
     Dates: start: 20010704, end: 20050927
  7. HALCION [Concomitant]
     Dosage: .125 MG, QD
     Route: 048
     Dates: start: 20030814, end: 20050927

REACTIONS (3)
  - GASTRIC CANCER [None]
  - HAEMOGLOBIN DECREASED [None]
  - HEPATIC ENZYME INCREASED [None]
